FAERS Safety Report 16134859 (Version 1)
Quarter: 2019Q1

REPORT INFORMATION
  Report Type: Spontaneous
  Country: US (occurrence: US)
  Receive Date: 20190329
  Receipt Date: 20190329
  Transmission Date: 20190418
  Serious: Yes (Other)
  Sender: FDA-Public Use
  Company Number: US-009507513-1903USA011341

PATIENT
  Age: 83 Year
  Sex: Male
  Weight: 67.13 kg

DRUGS (4)
  1. SINEMET [Suspect]
     Active Substance: CARBIDOPA\LEVODOPA
     Dosage: ONE TABLET (25/100 MG) THREE TIMES A DAY
  2. LEVOTHYROXINE SODIUM. [Suspect]
     Active Substance: LEVOTHYROXINE SODIUM
     Indication: THYROID DISORDER
     Dosage: ONE TABLET (75 MICROGRAM) IN MORNING
     Route: 048
  3. SINEMET [Suspect]
     Active Substance: CARBIDOPA\LEVODOPA
     Indication: PARKINSON^S DISEASE
     Dosage: 1.5 PILL (25/100 MG), DAILY
     Route: 048
  4. ASPIRIN. [Suspect]
     Active Substance: ASPIRIN
     Indication: ANTICOAGULANT THERAPY
     Dosage: 81 MILLIGRAM, ONCE A DAY

REACTIONS (7)
  - Aortic valve replacement [Unknown]
  - Neuropathy peripheral [Unknown]
  - Vision blurred [Unknown]
  - Balance disorder [Unknown]
  - Stent placement [Unknown]
  - Feeling abnormal [Unknown]
  - Abdominal discomfort [Unknown]

NARRATIVE: CASE EVENT DATE: 201606
